FAERS Safety Report 15905364 (Version 1)
Quarter: 2019Q1

REPORT INFORMATION
  Report Type: Spontaneous
  Country: US (occurrence: US)
  Receive Date: 20190111
  Receipt Date: 20190111
  Transmission Date: 20190417
  Serious: No
  Sender: FDA-Public Use
  Company Number: None

PATIENT
  Age: 68 Year
  Sex: Male
  Weight: 125.65 kg

DRUGS (1)
  1. KRYSTEXXA [Suspect]
     Active Substance: PEGLOTICASE
     Indication: GOUT
     Dosage: INFUSE 8MG INTRAVENOUSLY EVERY 2 WEEKS OVER NO LESS THAN 120 MINUTES AS DIRECTED
     Route: 042
     Dates: start: 201809

REACTIONS (3)
  - Cardiac failure congestive [None]
  - Dyspnoea [None]
  - Blood uric acid increased [None]
